FAERS Safety Report 8875761 (Version 1)
Quarter: 2012Q4

REPORT INFORMATION
  Report Type: 
  Country: JP (occurrence: JP)
  Receive Date: 20121030
  Receipt Date: 20121030
  Transmission Date: 20130627
  Serious: Yes (Death, Life-Threatening, Hospitalization, Other)
  Sender: FDA-Public Use
  Company Number: PHHY2012JP096371

PATIENT
  Age: 71 Year
  Sex: Female
  Weight: 39 kg

DRUGS (40)
  1. VOLTAREN [Suspect]
     Indication: RHEUMATOID ARTHRITIS
     Dosage: 1 DF, BID
     Route: 054
     Dates: end: 20100622
  2. PREDNISOLONE [Suspect]
     Indication: RHEUMATOID ARTHRITIS
     Dosage: 2.5 mg, BID
     Route: 048
     Dates: end: 20100625
  3. BEVACIZUMAB [Suspect]
     Indication: LUNG ADENOCARCINOMA
     Dosage: 15 mg/kg, (1 in 2 week)
     Route: 042
     Dates: start: 20100625, end: 20100721
  4. TOCILIZUMAB [Suspect]
     Indication: RHEUMATOID ARTHRITIS
     Dosage: 360 mg, (1 in 4 week)
     Route: 042
     Dates: start: 20080807, end: 20080807
  5. TOCILIZUMAB [Suspect]
     Dosage: 360 mg, (1 in 4 week)
     Route: 042
     Dates: start: 20080904, end: 20080904
  6. TOCILIZUMAB [Suspect]
     Dosage: 400 mg, (1 in 4 week)
     Route: 042
     Dates: start: 20081001, end: 20081001
  7. TOCILIZUMAB [Suspect]
     Dosage: 400 mg, (1 in 4 week)
     Route: 042
     Dates: start: 20081029, end: 20081029
  8. TOCILIZUMAB [Suspect]
     Dosage: 400 mg, (1 in 4 week)
     Route: 042
     Dates: start: 20081126, end: 20081126
  9. TOCILIZUMAB [Suspect]
     Dosage: 400 mg, (1 in 4 week)
     Route: 042
     Dates: start: 20081224, end: 20081224
  10. TOCILIZUMAB [Suspect]
     Dosage: 400 mg, (1 in 4 week)
     Route: 042
     Dates: start: 20090121, end: 20090121
  11. TOCILIZUMAB [Suspect]
     Dosage: 400 mg, (1 in 4 week)
     Route: 042
     Dates: start: 20090218, end: 20090218
  12. TOCILIZUMAB [Suspect]
     Dosage: 400 mg, (1 in 4 week)
     Route: 042
     Dates: start: 20090319, end: 20090319
  13. TOCILIZUMAB [Suspect]
     Dosage: 400 mg, (1 in 4 week)
     Route: 042
     Dates: start: 20090415, end: 20090415
  14. TOCILIZUMAB [Suspect]
     Dosage: 400 mg, (1 in 4 week)
     Route: 042
     Dates: start: 20090513, end: 20090513
  15. TOCILIZUMAB [Suspect]
     Dosage: 400 mg, (1 in 4 week)
     Route: 042
     Dates: start: 20090610, end: 20090610
  16. TOCILIZUMAB [Suspect]
     Dosage: 400 mg, (1 in 4 week)
     Route: 042
     Dates: start: 20090708, end: 20090708
  17. TOCILIZUMAB [Suspect]
     Dosage: 400 mg, (1 in 4 week)
     Route: 042
     Dates: start: 20090805, end: 20100510
  18. PREDONINE [Suspect]
     Indication: RHEUMATOID ARTHRITIS
     Dosage: 7.5 mg, per day
     Route: 048
     Dates: start: 20100625
  19. PREDONINE [Suspect]
     Dosage: 5 mg, BID
     Route: 048
     Dates: end: 20100806
  20. LORNOXICAM [Suspect]
     Indication: RHEUMATOID ARTHRITIS
     Dosage: 1 DF, TID
     Route: 048
     Dates: end: 20100621
  21. PARAPLATIN [Suspect]
     Indication: LUNG ADENOCARCINOMA
     Dosage: 1 DF, (1 in 4 week)
     Route: 042
     Dates: start: 20100625, end: 20100721
  22. ALIMTA [Suspect]
     Indication: LUNG ADENOCARCINOMA
     Dosage: 1 DF, (1 in 4 week)
     Route: 042
     Dates: start: 20100625, end: 20100721
  23. LORNOXICAM [Concomitant]
  24. PROGRAF [Concomitant]
     Indication: RHEUMATOID ARTHRITIS
     Dosage: 1 DF, per day
     Route: 048
     Dates: start: 20080810
  25. METALCAPTASE [Concomitant]
     Indication: RHEUMATOID ARTHRITIS
     Dosage: 1 DF, per day
     Route: 048
  26. ISCOTIN [Concomitant]
     Indication: ANTIBIOTIC PROPHYLAXIS
     Dosage: 1 DF, per day
     Route: 048
     Dates: start: 20080630
  27. RIFADIN [Concomitant]
     Indication: ANTIBIOTIC PROPHYLAXIS
     Dosage: 1 DF, per day
     Route: 048
     Dates: start: 20080630
  28. PYDOXAL [Concomitant]
     Indication: PROPHYLAXIS
     Dosage: 1 DF, per day
     Route: 048
  29. TAKEPRON [Concomitant]
     Indication: GASTRITIS
     Dosage: 30 mg, per day
     Route: 048
     Dates: end: 20100730
  30. PLETAAL [Concomitant]
     Indication: ARTERIAL OCCLUSIVE DISEASE
     Dosage: 1 DF, per day
     Route: 048
  31. BONALON [Concomitant]
     Indication: OSTEOPOROSIS
     Dosage: 1 DF, QW
     Route: 048
  32. PURSENNID [Concomitant]
     Dosage: 2 DF, per day
     Route: 048
  33. FLURBIPROFEN [Concomitant]
     Indication: RHEUMATOID ARTHRITIS
     Dosage: 1 DF, per day
     Route: 062
  34. CYTOTEC [Concomitant]
     Indication: GASTRITIS
     Dosage: 1 DF, per day
     Route: 048
  35. EVISTA [Concomitant]
     Indication: OSTEOPOROSIS
     Dosage: 1 DF, per day
     Route: 048
  36. FERROMIA [Concomitant]
     Indication: PROPHYLAXIS
     Dosage: 1 DF, per day
     Route: 048
  37. CLARITHROMYCIN [Concomitant]
     Indication: PROPHYLAXIS
     Dosage: 200 mg, per day
     Route: 048
  38. CLARITHROMYCIN [Concomitant]
     Dosage: 400 mg, per day
     Route: 048
  39. CRAVIT [Concomitant]
     Dosage: 1 DF, per day
     Route: 048
  40. HALCION [Concomitant]
     Dosage: 1 DF, per day
     Route: 048

REACTIONS (25)
  - Lung adenocarcinoma [Fatal]
  - Metastases to lymph nodes [Fatal]
  - Lumbar spinal stenosis [Unknown]
  - Musculoskeletal pain [Unknown]
  - Groin pain [Unknown]
  - Peritonitis [Unknown]
  - Pleural effusion [Unknown]
  - Atrial fibrillation [Unknown]
  - Wound infection staphylococcal [Unknown]
  - Pyrexia [Unknown]
  - Tachycardia [Unknown]
  - Calculus urinary [Unknown]
  - Sciatica [Unknown]
  - Arthralgia [Unknown]
  - Ileus [Unknown]
  - Amyloidosis [Unknown]
  - Gastrointestinal amyloidosis [Unknown]
  - Abdominal pain [Unknown]
  - Abdominal tenderness [Unknown]
  - Small intestinal perforation [Unknown]
  - Small intestine ulcer [Unknown]
  - Gastritis atrophic [Unknown]
  - Cardiac failure [Unknown]
  - Diarrhoea [Unknown]
  - Abdominal rigidity [Unknown]
